FAERS Safety Report 5762452-4 (Version None)
Quarter: 2008Q2

REPORT INFORMATION
  Report Type: 
  Country: None (occurrence: None)
  Receive Date: 20080527
  Receipt Date: 20071116
  Transmission Date: 20081010
  Serious: Yes (Hospitalization)
  Sender: FDA-Public Use
  Company Number: 251528

PATIENT

DRUGS (2)
  1. HERCEPTIN [Suspect]
     Indication: METASTATIC NEOPLASM
  2. ABRAXANE [Concomitant]

REACTIONS (1)
  - ANAPHYLACTIC REACTION [None]
